FAERS Safety Report 4471096-6 (Version None)
Quarter: 2004Q4

REPORT INFORMATION
  Report Type: 
  Country: None (occurrence: None)
  Receive Date: 20041011
  Receipt Date: 20040512
  Transmission Date: 20050328
  Serious: Yes (Other)
  Sender: FDA-Public Use
  Company Number: PHEH2004US05340

PATIENT
  Age: 77 Year
  Sex: Male

DRUGS (12)
  1. ZOMETA [Suspect]
     Indication: METASTASES TO BONE
     Dosage: 4 MG, QMO
     Route: 042
     Dates: start: 20021112, end: 20040318
  2. DES [Concomitant]
     Indication: PROSTATE CANCER
     Dosage: 1 MG, TID
     Dates: start: 20000411
  3. TAXOTERE [Concomitant]
     Indication: PROSTATE CANCER
     Dosage: 50 MG, QW
     Dates: start: 20021112, end: 20031008
  4. ATENOLOL [Concomitant]
     Dosage: 50 MG, QD
  5. BEXTRA [Concomitant]
     Dosage: 20 MG, QD
  6. DILTIAZEM [Concomitant]
     Dosage: 30 MG, TID
  7. GLYBURIDE [Concomitant]
     Dosage: 2.5 MG, QD
  8. NEURONTIN [Concomitant]
     Dosage: 300 MG, TID
  9. OMEPRAZOLE [Concomitant]
     Dosage: 20 MG, BID
  10. OXYCONTIN [Concomitant]
     Dosage: 20 MG, BID
  11. OXYCONTIN [Concomitant]
     Dosage: 80 MG, BID
  12. PROCHLORPERAZINE [Concomitant]

REACTIONS (11)
  - BONE DISORDER [None]
  - DENTAL CARIES [None]
  - HAEMORRHAGE [None]
  - IMPAIRED HEALING [None]
  - INFECTION [None]
  - ORAL PAIN [None]
  - OSTEONECROSIS [None]
  - PERIODONTAL DISEASE [None]
  - SWELLING [None]
  - TOOTH ABSCESS [None]
  - TOOTH EXTRACTION [None]
